FAERS Safety Report 22095383 (Version 1)
Quarter: 2023Q1

REPORT INFORMATION
  Report Type: Report from Study
  Country: US (occurrence: US)
  Receive Date: 20230314
  Receipt Date: 20230314
  Transmission Date: 20230418
  Serious: Yes (Hospitalization)
  Sender: FDA-Public Use
  Company Number: US-PFIZER INC-20150901076

PATIENT
  Age: 34 Year
  Sex: Female
  Weight: 52.6 kg

DRUGS (15)
  1. EXEMESTANE [Suspect]
     Active Substance: EXEMESTANE
     Indication: Breast cancer
     Dosage: 1 DF, 1X/DAY
     Route: 048
     Dates: start: 20150212
  2. ENZALUTAMIDE [Suspect]
     Active Substance: ENZALUTAMIDE
     Indication: Breast cancer
     Dosage: 160 MG, 1X/DAY
     Route: 048
     Dates: start: 20150212
  3. TRAMADOL HCL [Concomitant]
     Active Substance: TRAMADOL HYDROCHLORIDE
     Indication: Pain
     Dosage: UNK
     Dates: start: 20141126
  4. FOLIC ACID [Concomitant]
     Active Substance: FOLIC ACID
     Indication: Vitamin supplementation
     Dosage: UNK UNK, 1X/DAY
     Route: 048
     Dates: start: 20141112
  5. FOLIC ACID [Concomitant]
     Active Substance: FOLIC ACID
     Dosage: UNK
     Dates: start: 20130314
  6. XGEVA [Concomitant]
     Active Substance: DENOSUMAB
     Indication: Metastases to bone
     Dosage: 120 MG, CYCLIC, EVERY 4 WEEKS
     Route: 030
     Dates: start: 20141126
  7. ZOLADEX [Concomitant]
     Active Substance: GOSERELIN ACETATE
     Dosage: UNK
     Dates: start: 20141126
  8. ZOFRAN [Concomitant]
     Active Substance: ONDANSETRON HYDROCHLORIDE
     Indication: Nausea
     Dosage: UNK
     Dates: start: 20150202
  9. ZOFRAN [Concomitant]
     Active Substance: ONDANSETRON HYDROCHLORIDE
     Indication: Vomiting
  10. NORCO [Concomitant]
     Active Substance: ACETAMINOPHEN\HYDROCODONE BITARTRATE
     Indication: Pain
     Dosage: 1 DF, AS NEEDED, 10-325 MG, Q 4 HR
     Route: 048
     Dates: start: 20141105
  11. METOCLOPRAMIDE [Concomitant]
     Active Substance: METOCLOPRAMIDE
     Dosage: UNK
     Dates: start: 20150212
  12. LORAZEPAM [Concomitant]
     Active Substance: LORAZEPAM
     Dosage: 0.5 MG, AS NEEDED
     Route: 048
     Dates: start: 20121213
  13. KETOCONAZOLE [Concomitant]
     Active Substance: KETOCONAZOLE
     Indication: Pruritus
     Dosage: 2 DF, WEEKLY, (SACHET)
     Route: 061
     Dates: start: 20141126
  14. FLUOCINOLONE ACETONIDE ACETATE [Concomitant]
     Indication: Pruritus
     Dosage: 0.01 %, AS NEEDED
     Route: 061
     Dates: start: 20141126
  15. CHOLECALCIFEROL [Concomitant]
     Active Substance: CHOLECALCIFEROL
     Indication: General physical condition
     Dosage: 1 DF, 1X/DAY, (TABLET)
     Route: 048
     Dates: start: 20141126

REACTIONS (3)
  - Syncope [Recovered/Resolved]
  - Asthenia [Recovered/Resolved]
  - Dizziness [Recovered/Resolved]

NARRATIVE: CASE EVENT DATE: 20150223
